FAERS Safety Report 5565659-4 (Version None)
Quarter: 2007Q4

REPORT INFORMATION
  Report Type: 
  Country: None (occurrence: None)
  Receive Date: 20071218
  Receipt Date: 20071205
  Transmission Date: 20080405
  Serious: Yes (Hospitalization)
  Sender: FDA-Public Use
  Company Number: GB-GENENTECH-252650

PATIENT
  Age: 40 Year
  Sex: Female

DRUGS (1)
  1. AVASTIN [Suspect]
     Indication: BREAST CANCER METASTATIC

REACTIONS (6)
  - AGITATION [None]
  - EMOTIONAL DISTRESS [None]
  - GASTROINTESTINAL PERFORATION [None]
  - HAEMOGLOBIN DECREASED [None]
  - MELAENA [None]
  - PNEUMONIA [None]
